FAERS Safety Report 6804169-0 (Version None)
Quarter: 2010Q2

REPORT INFORMATION
  Report Type: 
  Country: None (occurrence: None)
  Receive Date: 20100628
  Receipt Date: 20070125
  Transmission Date: 20101027
  Serious: No
  Sender: FDA-Public Use
  Company Number: US-PFIZER INC-2007007331

PATIENT
  Sex: Female
  Weight: 55.34 kg

DRUGS (9)
  1. XALATAN [Suspect]
     Indication: GLAUCOMA
     Dosage: ONE DROP IN EACH EYE
  2. FEXOFENADINE [Concomitant]
  3. VALSARTAN [Concomitant]
     Indication: HYPERTENSION
  4. PRILOSEC [Concomitant]
     Indication: DYSPEPSIA
  5. ACETYLSALICYLIC ACID [Concomitant]
  6. CRESTOR [Concomitant]
     Indication: BLOOD CHOLESTEROL INCREASED
  7. VITAMINS [Concomitant]
  8. AVALIDE [Concomitant]
  9. AVAPRO [Concomitant]

REACTIONS (3)
  - DRY EYE [None]
  - EYELASH DISCOLOURATION [None]
  - HAIR COLOUR CHANGES [None]
